FAERS Safety Report 5174980-3 (Version None)
Quarter: 2006Q4

REPORT INFORMATION
  Report Type: 
  Country: None (occurrence: None)
  Receive Date: 20061214
  Receipt Date: 20060531
  Transmission Date: 20070319
  Serious: No
  Sender: FDA-Public Use
  Company Number: US-AMGEN-KDL181554

PATIENT
  Sex: Female

DRUGS (2)
  1. ENBREL [Suspect]
     Indication: RHEUMATOID ARTHRITIS
     Route: 058
     Dates: start: 20060530
  2. MINOCYCLINE HCL [Concomitant]
     Dates: start: 20060518

REACTIONS (4)
  - DIZZINESS [None]
  - FATIGUE [None]
  - PAROSMIA [None]
  - VISION BLURRED [None]
